FAERS Safety Report 25478588 (Version 1)
Quarter: 2025Q2

REPORT INFORMATION
  Report Type: Spontaneous
  Country: US (occurrence: US)
  Receive Date: 20250625
  Receipt Date: 20250625
  Transmission Date: 20250717
  Serious: No
  Sender: MYLAN
  Company Number: US-MYLANLABS-2025M1052561

PATIENT
  Sex: Female

DRUGS (1)
  1. FENTANYL TRANSDERMAL SYSTEM [Suspect]
     Active Substance: FENTANYL
     Indication: Muscle spasms
     Dosage: 12 MICROGRAM, QH (ONCE A DAY)

REACTIONS (2)
  - Off label use [Unknown]
  - Product packaging quantity issue [Unknown]
